FAERS Safety Report 24061921 (Version 1)
Quarter: 2024Q3

REPORT INFORMATION
  Report Type: Spontaneous
  Country: CN (occurrence: CN)
  Receive Date: 20240708
  Receipt Date: 20240708
  Transmission Date: 20241016
  Serious: Yes (Hospitalization, Other)
  Sender: NOVARTIS
  Company Number: CN-002147023-NVSC2024CN140690

PATIENT
  Age: 86 Year
  Sex: Male
  Weight: 50 kg

DRUGS (3)
  1. CARBAMAZEPINE [Suspect]
     Active Substance: CARBAMAZEPINE
     Indication: Analgesic therapy
     Dosage: 1 DOSAGE FORM, BID
     Route: 048
     Dates: start: 20230413, end: 20240413
  2. CARBAMAZEPINE [Suspect]
     Active Substance: CARBAMAZEPINE
     Indication: Back pain
  3. CEFOPERAZONE SODIUM\SULBACTAM SODIUM [Concomitant]
     Active Substance: CEFOPERAZONE SODIUM\SULBACTAM SODIUM
     Indication: Infection
     Dosage: 3 G, TID
     Route: 041
     Dates: start: 20240502, end: 20240507

REACTIONS (3)
  - Dermatitis exfoliative [Not Recovered/Not Resolved]
  - Drug eruption [Unknown]
  - Condition aggravated [Unknown]

NARRATIVE: CASE EVENT DATE: 20240507
